FAERS Safety Report 4496415-6 (Version None)
Quarter: 2004Q4

REPORT INFORMATION
  Report Type: 
  Country: None (occurrence: None)
  Receive Date: 20041108
  Receipt Date: 20041108
  Transmission Date: 20050328
  Serious: Yes (Other)
  Sender: FDA-Public Use
  Company Number: None

PATIENT
  Age: 45 Year
  Sex: Male
  Weight: 87.9978 kg

DRUGS (1)
  1. CERETEC [Suspect]
     Indication: NUCLEAR MAGNETIC RESONANCE IMAGING BRAIN
     Dosage: 25 MCI  SCAN INTRAVENOUS
     Route: 042

REACTIONS (1)
  - MEDICATION ERROR [None]
